FAERS Safety Report 5503293-2 (Version None)
Quarter: 2007Q4

REPORT INFORMATION
  Report Type: 
  Country: None (occurrence: None)
  Receive Date: 20071031
  Receipt Date: 20071029
  Transmission Date: 20080405
  Serious: Yes (Life-Threatening, Hospitalization)
  Sender: FDA-Public Use
  Company Number: PL-SHR-PL-2007-026131

PATIENT
  Age: 65 Year
  Sex: Female

DRUGS (1)
  1. ULTRAVIST 370 [Suspect]
     Dosage: 70 ML, 1 DOSE
     Route: 040
     Dates: start: 20070704, end: 20070704

REACTIONS (9)
  - BLOOD PRESSURE IMMEASURABLE [None]
  - DYSPNOEA [None]
  - FACE OEDEMA [None]
  - LOSS OF CONSCIOUSNESS [None]
  - NAUSEA [None]
  - PALLOR [None]
  - PERIPHERAL COLDNESS [None]
  - PULSE ABNORMAL [None]
  - VOMITING [None]
